FAERS Safety Report 23145560 (Version 1)
Quarter: 2023Q4

REPORT INFORMATION
  Report Type: Spontaneous
  Country: PL (occurrence: PL)
  Receive Date: 20231103
  Receipt Date: 20231103
  Transmission Date: 20240110
  Serious: Yes (Other)
  Sender: FDA-Public Use
  Company Number: PL-002147023-NVSC2023PL231207

PATIENT

DRUGS (1)
  1. RUXOLITINIB [Suspect]
     Active Substance: RUXOLITINIB
     Indication: Product used for unknown indication
     Dosage: 20 MG (2 X10 MG)
     Route: 065
     Dates: start: 201811

REACTIONS (13)
  - Diverticulitis [Unknown]
  - Osteonecrosis [Unknown]
  - Jaundice cholestatic [Unknown]
  - Liver injury [Unknown]
  - Duodenitis [Unknown]
  - Arteriosclerosis [Unknown]
  - Eye infarction [Unknown]
  - Contusion [Unknown]
  - Craniofacial fracture [Unknown]
  - Fall [Unknown]
  - Bone infarction [Unknown]
  - Cholelithiasis [Unknown]
  - Herpes zoster [Unknown]
